FAERS Safety Report 5375348-7 (Version None)
Quarter: 2007Q2

REPORT INFORMATION
  Report Type: 
  Country: None (occurrence: None)
  Receive Date: 20070629
  Receipt Date: 20070619
  Transmission Date: 20071010
  Serious: Yes (Other)
  Sender: FDA-Public Use
  Company Number: US-PFIZER INC-2006153462

PATIENT
  Sex: Female
  Weight: 63.5 kg

DRUGS (7)
  1. XALATAN [Suspect]
     Indication: GLAUCOMA
     Dosage: FREQ:INTERVAL: EVERYDAY
  2. XALATAN [Suspect]
     Indication: INTRAOCULAR PRESSURE INCREASED
  3. ISOSORBIDE DINITRATE [Concomitant]
  4. COZAAR [Concomitant]
  5. DRUG, UNSPECIFIED [Concomitant]
  6. HYDROCHLOROTHIAZIDE [Concomitant]
  7. SYNTHROID [Concomitant]

REACTIONS (1)
  - INTRAOCULAR PRESSURE INCREASED [None]
